FAERS Safety Report 6919901-5 (Version None)
Quarter: 2010Q3

REPORT INFORMATION
  Report Type: 
  Country: None (occurrence: None)
  Receive Date: 20100811
  Receipt Date: 20100803
  Transmission Date: 20110219
  Serious: Yes (Hospitalization)
  Sender: FDA-Public Use
  Company Number: A0875040A

PATIENT
  Age: 60 Year
  Sex: Female

DRUGS (2)
  1. AVANDIA [Suspect]
     Route: 048
  2. AVANDAMET [Suspect]
     Route: 048
     Dates: end: 20060101

REACTIONS (2)
  - HEART RATE IRREGULAR [None]
  - HOSPITALISATION [None]
